FAERS Safety Report 24123506 (Version 1)
Quarter: 2024Q3

REPORT INFORMATION
  Report Type: Spontaneous
  Country: US (occurrence: US)
  Receive Date: 20240723
  Receipt Date: 20240723
  Transmission Date: 20241017
  Serious: Yes (Other)
  Sender: OTSUKA
  Company Number: US-OTSUKA-2023_031159

PATIENT
  Sex: Female
  Weight: 72.57 kg

DRUGS (5)
  1. REXULTI [Suspect]
     Active Substance: BREXPIPRAZOLE
     Indication: Major depression
     Dosage: 1 MG
     Route: 065
  2. TRAZODONE [Concomitant]
     Active Substance: TRAZODONE HYDROCHLORIDE
     Indication: Insomnia
     Dosage: UNK
     Route: 065
  3. WELLBUTRIN [Concomitant]
     Active Substance: BUPROPION HYDROCHLORIDE
     Indication: Product used for unknown indication
     Dosage: 300 MG
     Route: 065
  4. WELLBUTRIN [Concomitant]
     Active Substance: BUPROPION HYDROCHLORIDE
     Dosage: 150 MG
     Route: 065
  5. LEVOXINE [LEVOTHYROXINE SODIUM] [Concomitant]
     Indication: Product used for unknown indication
     Dosage: 450 MG, QD (THREE OF THE 150 MG TABLETS DAILY)
     Route: 065

REACTIONS (3)
  - Blood glucose increased [Unknown]
  - Malaise [Unknown]
  - Compulsive shopping [Unknown]
